FAERS Safety Report 9341074 (Version 1)
Quarter: 2013Q2

REPORT INFORMATION
  Report Type: Spontaneous
  Country: US (occurrence: US)
  Receive Date: 20130610
  Receipt Date: 20130610
  Transmission Date: 20140414
  Serious: Yes (Hospitalization, Other)
  Sender: FDA-Public Use
  Company Number: US-RB-044168-12

PATIENT
  Age: 56 Year
  Sex: Female

DRUGS (4)
  1. SUBOXONE TABLET [Suspect]
     Indication: DRUG DEPENDENCE
     Route: 060
     Dates: start: 2005, end: 2011
  2. SUBUTEX [Suspect]
     Indication: DRUG DEPENDENCE
     Route: 060
     Dates: start: 2011, end: 201208
  3. SUBUTEX [Suspect]
     Dosage: VARIOUS DOSES
     Route: 060
     Dates: end: 201305
  4. KLONOPIN [Concomitant]
     Indication: SLEEP DISORDER
     Dosage: DOSING DETAILS UNKNOWN
     Route: 048

REACTIONS (7)
  - Meningioma [Recovered/Resolved]
  - Monoplegia [Recovered/Resolved]
  - Underdose [Recovered/Resolved]
  - Drug withdrawal syndrome [Not Recovered/Not Resolved]
  - Sneezing [Not Recovered/Not Resolved]
  - Feeling of body temperature change [Not Recovered/Not Resolved]
  - Myalgia [Not Recovered/Not Resolved]
